FAERS Safety Report 6456725-X (Version None)
Quarter: 2009Q4

REPORT INFORMATION
  Report Type: 
  Country: None (occurrence: None)
  Receive Date: 20091125
  Receipt Date: 20091117
  Transmission Date: 20100525
  Serious: Yes (Other)
  Sender: FDA-Public Use
  Company Number: JP-ELI_LILLY_AND_COMPANY-JP200909002128

PATIENT
  Sex: Male

DRUGS (1)
  1. GEMZAR [Suspect]
     Route: 042
     Dates: start: 20090101

REACTIONS (3)
  - BLOOD ALBUMIN DECREASED [None]
  - HEPATIC ATROPHY [None]
  - PROTHROMBIN TIME SHORTENED [None]
